FAERS Safety Report 5494624-0 (Version None)
Quarter: 2007Q4

REPORT INFORMATION
  Report Type: 
  Country: None (occurrence: None)
  Receive Date: 20071024
  Receipt Date: 20071018
  Transmission Date: 20080405
  Serious: Yes (Hospitalization)
  Sender: FDA-Public Use
  Company Number: BR-ASTRAZENECA-2007UW24443

PATIENT
  Age: 88 Year
  Sex: Male
  Weight: 82 kg

DRUGS (5)
  1. ZOLADEX [Suspect]
     Indication: PROSTATE CANCER
     Route: 058
     Dates: start: 19970101
  2. SODIUM DICLOFENAC [Concomitant]
     Indication: GOUT
     Route: 048
  3. ZYLORIC [Concomitant]
     Indication: GOUT
     Route: 048
  4. OMEPRAZOLE [Concomitant]
     Indication: DYSPEPSIA
     Route: 048
  5. MODURETIC 5-50 [Concomitant]
     Indication: HYPERTENSION
     Route: 048

REACTIONS (5)
  - BLOOD URIC ACID INCREASED [None]
  - DYSURIA [None]
  - OBSTRUCTION [None]
  - OEDEMA PERIPHERAL [None]
  - URINE COLOUR ABNORMAL [None]
